FAERS Safety Report 7931154-8 (Version None)
Quarter: 2011Q4

REPORT INFORMATION
  Report Type: 
  Country: None (occurrence: None)
  Receive Date: 20111121
  Receipt Date: 20111115
  Transmission Date: 20120403
  Serious: Yes (Hospitalization)
  Sender: FDA-Public Use
  Company Number: US-MERCK-1111USA01361

PATIENT
  Age: 27 Year
  Sex: Female

DRUGS (1)
  1. MAXALT [Suspect]
     Route: 048
     Dates: start: 20111103, end: 20111101

REACTIONS (5)
  - MUSCULAR WEAKNESS [None]
  - CHEST PAIN [None]
  - DECREASED APPETITE [None]
  - TREMOR [None]
  - HYPERTENSION [None]
